FAERS Safety Report 7568381-8 (Version None)
Quarter: 2011Q2

REPORT INFORMATION
  Report Type: 
  Country: None (occurrence: None)
  Receive Date: 20110623
  Receipt Date: 20110610
  Transmission Date: 20111010
  Serious: Yes (Other)
  Sender: FDA-Public Use
  Company Number: B0722363A

PATIENT
  Sex: Female
  Weight: 47 kg

DRUGS (1)
  1. PAZOPANIB [Suspect]
     Indication: OVARIAN NEOPLASM
     Route: 048
     Dates: start: 20110407

REACTIONS (1)
  - DEEP VEIN THROMBOSIS [None]
